FAERS Safety Report 6641706-3 (Version None)
Quarter: 2010Q1

REPORT INFORMATION
  Report Type: 
  Country: None (occurrence: None)
  Receive Date: 20100319
  Receipt Date: 20100309
  Transmission Date: 20100710
  Serious: Yes (Hospitalization, Other)
  Sender: FDA-Public Use
  Company Number: US-BIOGENIDEC-2010BI004312

PATIENT
  Age: 30 Year
  Sex: Female
  Weight: 74 kg

DRUGS (1)
  1. TYSABRI [Suspect]
     Indication: MULTIPLE SCLEROSIS
     Route: 042
     Dates: start: 20080601, end: 20100101

REACTIONS (12)
  - ANAEMIA [None]
  - BILIARY CIRRHOSIS PRIMARY [None]
  - BLOOD CALCIUM INCREASED [None]
  - DRUG SPECIFIC ANTIBODY PRESENT [None]
  - DYSPEPSIA [None]
  - GASTRIC PH DECREASED [None]
  - HAEMOGLOBIN DECREASED [None]
  - HEPATOMEGALY [None]
  - LIVER INJURY [None]
  - PROTEIN TOTAL DECREASED [None]
  - RENAL IMPAIRMENT [None]
  - VOMITING [None]
